FAERS Safety Report 16472409 (Version 5)
Quarter: 2021Q3

REPORT INFORMATION
  Report Type: Other
  Country: BR (occurrence: BR)
  Receive Date: 20190625
  Receipt Date: 20210908
  Transmission Date: 20211014
  Serious: Yes (Other)
  Sender: FDA-Public Use
  Company Number: BR-ROCHE-2340276

PATIENT
  Age: 57 Year
  Sex: Female

DRUGS (3)
  1. XOLAIR [Suspect]
     Active Substance: OMALIZUMAB
     Dosage: UNK
     Route: 065
     Dates: start: 20210721
  2. XOLAIR [Suspect]
     Active Substance: OMALIZUMAB
     Indication: CHRONIC SPONTANEOUS URTICARIA
     Dosage: UNK
     Route: 065
     Dates: start: 20190326
  3. XOLAIR [Suspect]
     Active Substance: OMALIZUMAB
     Dosage: UNK
     Route: 065
     Dates: start: 20200330

REACTIONS (23)
  - Lung disorder [Recovering/Resolving]
  - Panic disorder [Recovering/Resolving]
  - Thrombosis [Recovering/Resolving]
  - Abdominal pain [Unknown]
  - COVID-19 [Recovered/Resolved with Sequelae]
  - Diarrhoea [Unknown]
  - Nasal disorder [Recovering/Resolving]
  - Nasal oedema [Recovering/Resolving]
  - Influenza [Unknown]
  - Dysentery [Recovering/Resolving]
  - Thyroid disorder [Recovering/Resolving]
  - Deformity [Recovering/Resolving]
  - Respiratory disorder [Recovering/Resolving]
  - Blood glucose fluctuation [Recovering/Resolving]
  - Dyspnoea [Recovering/Resolving]
  - Skin plaque [Recovering/Resolving]
  - Pain in extremity [Recovering/Resolving]
  - Depression [Recovering/Resolving]
  - Pruritus [Recovering/Resolving]
  - Mouth swelling [Recovering/Resolving]
  - Swelling face [Recovering/Resolving]
  - Eye swelling [Recovering/Resolving]
  - Sneezing [Recovering/Resolving]

NARRATIVE: CASE EVENT DATE: 20190527
